FAERS Safety Report 6167282-X (Version None)
Quarter: 2009Q2

REPORT INFORMATION
  Report Type: 
  Country: None (occurrence: None)
  Receive Date: 20090423
  Receipt Date: 20090409
  Transmission Date: 20091009
  Serious: Yes (Other)
  Sender: FDA-Public Use
  Company Number: JPI-P-006928

PATIENT
  Age: 38 Year
  Sex: Female

DRUGS (2)
  1. XYREM [Suspect]
     Indication: NARCOLEPSY
     Dosage: 4 GM (2 GM, 2 IN 1 D), ORAL; 8 GM (4 GM, 2 IN 1 D), ORAL
     Route: 048
     Dates: start: 20090226
  2. XYREM [Suspect]
     Indication: NARCOLEPSY
     Dosage: 4 GM (2 GM, 2 IN 1 D), ORAL; 8 GM (4 GM, 2 IN 1 D), ORAL
     Route: 048
     Dates: start: 20090402

REACTIONS (2)
  - INFLUENZA [None]
  - UNEVALUABLE EVENT [None]
